FAERS Safety Report 14510097 (Version 1)
Quarter: 2018Q1

REPORT INFORMATION
  Report Type: Spontaneous
  Country: US (occurrence: US)
  Receive Date: 20180209
  Receipt Date: 20180209
  Transmission Date: 20180509
  Serious: No
  Sender: FDA-Public Use
  Company Number: US-TEVA-2018-US-846982

PATIENT
  Sex: Female

DRUGS (2)
  1. CIPROFLOXACIN. [Suspect]
     Active Substance: CIPROFLOXACIN
     Indication: URINARY TRACT INFECTION
     Route: 065
     Dates: start: 20180110
  2. WARFARIN [Interacting]
     Active Substance: WARFARIN
     Route: 065

REACTIONS (2)
  - Drug interaction [Unknown]
  - Contraindication to medical treatment [Unknown]

NARRATIVE: CASE EVENT DATE: 20180110
